FAERS Safety Report 17159828 (Version 2)
Quarter: 2020Q1

REPORT INFORMATION
  Report Type: Spontaneous
  Country: US (occurrence: US)
  Receive Date: 20191216
  Receipt Date: 20200121
  Transmission Date: 20200409
  Serious: Yes (Hospitalization, Other)
  Sender: FDA-Public Use
  Company Number: US-SA-2019SA296447

PATIENT
  Age: 83 Year
  Sex: Male
  Weight: 85 kg

DRUGS (6)
  1. ASPIRINE [Concomitant]
     Active Substance: ASPIRIN
  2. PLAVIX [Suspect]
     Active Substance: CLOPIDOGREL BISULFATE
     Dosage: UNK
  3. ELIQUIS [Suspect]
     Active Substance: APIXABAN
     Dosage: 0.5 DF, QD
  4. HEPARIN [Concomitant]
     Active Substance: HEPARIN SODIUM
  5. ELIQUIS [Suspect]
     Active Substance: APIXABAN
     Dosage: 0.5 DF, BID, HALF A PILL IN THE MORNING AND HALF A PILL AT NIGHT
  6. ELIQUIS [Suspect]
     Active Substance: APIXABAN
     Dosage: 0.5 DF, TID

REACTIONS (6)
  - Biopsy kidney [Unknown]
  - Cerebrovascular accident [Unknown]
  - Haemorrhage [Unknown]
  - Off label use [Unknown]
  - Weight fluctuation [Unknown]
  - Swelling [Unknown]

NARRATIVE: CASE EVENT DATE: 20191007
